FAERS Safety Report 4606211-4 (Version None)
Quarter: 2005Q1

REPORT INFORMATION
  Report Type: 
  Country: None (occurrence: None)
  Receive Date: 20050115
  Receipt Date: 20040607
  Transmission Date: 20050727
  Serious: Yes (Other)
  Sender: FDA-Public Use
  Company Number: A03200401806

PATIENT
  Age: 28 Year
  Sex: Female
  Weight: 81.6475 kg

DRUGS (2)
  1. AMBIEN [Suspect]
     Indication: INSOMNIA
     Dosage: ORAL
     Route: 048
     Dates: start: 20040601, end: 20040601
  2. VENLAFAXINE HCL [Concomitant]

REACTIONS (2)
  - HALLUCINATION [None]
  - SLEEP WALKING [None]
